FAERS Safety Report 21161218 (Version 1)
Quarter: 2022Q3

REPORT INFORMATION
  Report Type: Spontaneous
  Country: US (occurrence: None)
  Receive Date: 20220801
  Receipt Date: 20220801
  Transmission Date: 20221027
  Serious: Yes (Life-Threatening, Hospitalization, Disabling, Other)
  Sender: FDA-Public Use
  Company Number: None

PATIENT
  Age: 40 Year
  Sex: Female
  Weight: 67.5 kg

DRUGS (1)
  1. CITROMA MAGNESIUM CITRATE [Suspect]
     Active Substance: MAGNESIUM CITRATE
     Indication: Constipation
     Dates: start: 20220528, end: 20220604

REACTIONS (7)
  - Dyspnoea [None]
  - Oxygen saturation decreased [None]
  - Body temperature decreased [None]
  - Vomiting [None]
  - Hiatus hernia [None]
  - Loss of consciousness [None]
  - Heart rate decreased [None]

NARRATIVE: CASE EVENT DATE: 20220604
